FAERS Safety Report 16803571 (Version 1)
Quarter: 2019Q3

REPORT INFORMATION
  Report Type: Spontaneous
  Country: US (occurrence: US)
  Receive Date: 20190913
  Receipt Date: 20190913
  Transmission Date: 20191005
  Serious: Yes (Other)
  Sender: FDA-Public Use
  Company Number: US-ZYDUS-040589

PATIENT
  Age: 16 Year
  Sex: Male

DRUGS (3)
  1. ATOMOXETINE/ATOMOXETINE HYDROCHLORIDE [Suspect]
     Active Substance: ATOMOXETINE HYDROCHLORIDE
     Indication: ATTENTION DEFICIT/HYPERACTIVITY DISORDER
     Route: 065
  2. METHYLPHENIDATE. [Interacting]
     Active Substance: METHYLPHENIDATE
     Indication: ATTENTION DEFICIT/HYPERACTIVITY DISORDER
     Route: 065
  3. METHYLPHENIDATE. [Interacting]
     Active Substance: METHYLPHENIDATE
     Indication: ATTENTION DEFICIT/HYPERACTIVITY DISORDER
     Route: 065

REACTIONS (7)
  - Peripheral swelling [Unknown]
  - Pallor [Unknown]
  - Drug interaction [Unknown]
  - Rash erythematous [Unknown]
  - Pain in extremity [Unknown]
  - Oedema peripheral [Unknown]
  - Peripheral vascular disorder [Unknown]
